FAERS Safety Report 14025785 (Version 1)
Quarter: 2017Q3

REPORT INFORMATION
  Report Type: Spontaneous
  Country: US (occurrence: US)
  Receive Date: 20170929
  Receipt Date: 20170929
  Transmission Date: 20171128
  Serious: No
  Sender: FDA-Public Use
  Company Number: US-PFIZER INC-2017419382

PATIENT
  Age: 57 Year
  Sex: Female
  Weight: 74.84 kg

DRUGS (1)
  1. XELJANZ [Suspect]
     Active Substance: TOFACITINIB CITRATE
     Indication: RHEUMATOID ARTHRITIS
     Dosage: 5 MG, 1X/DAY
     Dates: end: 201709

REACTIONS (12)
  - Psoriasis [Unknown]
  - Anxiety [Recovered/Resolved]
  - Pruritus [Unknown]
  - Fatigue [Recovered/Resolved]
  - Scar [Unknown]
  - Rash [Unknown]
  - Erythema [Unknown]
  - Malaise [Unknown]
  - Skin lesion [Recovered/Resolved with Sequelae]
  - Noninfective gingivitis [Recovered/Resolved]
  - Personality change [Unknown]
  - Product use issue [Unknown]
